FAERS Safety Report 23693329 (Version 2)
Quarter: 2024Q2

REPORT INFORMATION
  Report Type: Report from Study
  Country: CA (occurrence: CA)
  Receive Date: 20240401
  Receipt Date: 20240612
  Transmission Date: 20240716
  Serious: Yes (Other)
  Sender: FDA-Public Use
  Company Number: CA-IPSEN Group, Research and Development-2024-05150

PATIENT
  Age: 11 Year
  Sex: Female
  Weight: 34 kg

DRUGS (10)
  1. TAZEMETOSTAT [Suspect]
     Active Substance: TAZEMETOSTAT
     Indication: Atypical teratoid/rhabdoid tumour of CNS
     Route: 048
     Dates: start: 20240205, end: 20240220
  2. TAZEMETOSTAT [Suspect]
     Active Substance: TAZEMETOSTAT
     Indication: Off label use
     Route: 048
     Dates: start: 20240311
  3. TAZEMETOSTAT [Suspect]
     Active Substance: TAZEMETOSTAT
     Route: 048
     Dates: start: 20240401, end: 20240418
  4. DEXAMETHASONE [Concomitant]
     Active Substance: DEXAMETHASONE
     Indication: Headache
     Route: 048
     Dates: start: 20240122
  5. DEXAMETHASONE [Concomitant]
     Active Substance: DEXAMETHASONE
     Indication: Intracranial pressure increased
  6. NABILONE [Concomitant]
     Active Substance: NABILONE
  7. OLANZAPINE [Concomitant]
     Active Substance: OLANZAPINE
  8. PENTAMADRINE [Concomitant]
  9. OMEPRAZOLE [Concomitant]
     Active Substance: DONEPEZIL HYDROCHLORIDE\OMEPRAZOLE\OMEPRAZOLE MAGNESIUM
  10. POLYETHYLENE GLYCOLS [Concomitant]
     Active Substance: POLYETHYLENE GLYCOLS

REACTIONS (3)
  - Thrombocytopenia [Recovered/Resolved]
  - Disease progression [Unknown]
  - Off label use [Unknown]

NARRATIVE: CASE EVENT DATE: 20240221
